FAERS Safety Report 12425593 (Version 1)
Quarter: 2016Q2

REPORT INFORMATION
  Report Type: Spontaneous
  Country: JP (occurrence: JP)
  Receive Date: 20160601
  Receipt Date: 20160601
  Transmission Date: 20160815
  Serious: Yes (Hospitalization)
  Sender: FDA-Public Use
  Company Number: JP-BAYER-2016-098620

PATIENT
  Age: 75 Year
  Sex: Male
  Weight: 52.5 kg

DRUGS (8)
  1. MYSLEE [Concomitant]
     Active Substance: ZOLPIDEM TARTRATE
     Dosage: UNK
     Route: 048
  2. HIRUDOID [Concomitant]
     Active Substance: GLYCOSAMINOGLYCANS
     Dosage: UNK
     Route: 061
  3. CEFAMEZIN [CEFAZOLIN SODIUM] [Concomitant]
     Indication: PYREXIA
     Dosage: 1 G, BID
     Dates: start: 20160420, end: 20160422
  4. CIPROXAN [Suspect]
     Active Substance: CIPROFLOXACIN
     Indication: PYREXIA
     Dosage: 400 MG, BID
     Route: 041
     Dates: start: 20160425, end: 20160430
  5. BROTIZOLAM [Concomitant]
     Active Substance: BROTIZOLAM
     Dosage: UNK
     Route: 048
  6. ENSURE [MINERALS NOS,VITAMINS NOS] [Concomitant]
     Dosage: UNK
     Dates: start: 20160411
  7. SOLDEM 3A [Concomitant]
     Active Substance: CARBOHYDRATES\POTASSIUM CHLORIDE\SODIUM CHLORIDE\SODIUM LACTATE
     Dosage: UNK
  8. KARY UNI [Concomitant]
     Active Substance: PIRENOXINE
     Dosage: UNK
     Route: 047

REACTIONS (1)
  - Renal disorder [Recovering/Resolving]

NARRATIVE: CASE EVENT DATE: 20160502
